FAERS Safety Report 23135232 (Version 1)
Quarter: 2023Q4

REPORT INFORMATION
  Report Type: Report from Study
  Country: US (occurrence: US)
  Receive Date: 20231101
  Receipt Date: 20231101
  Transmission Date: 20240110
  Serious: Yes (Other)
  Sender: FDA-Public Use
  Company Number: US-SUN PHARMACEUTICAL INDUSTRIES LTD-2023R1-415773

PATIENT
  Age: 36 Year
  Sex: Male

DRUGS (4)
  1. CLOBETASOL [Suspect]
     Active Substance: CLOBETASOL
     Indication: Pyoderma gangrenosum
     Dosage: UNK
     Route: 065
  2. MUPIROCIN [Suspect]
     Active Substance: MUPIROCIN
     Indication: Pyoderma gangrenosum
     Dosage: UNK
     Route: 065
  3. PREDNISONE [Suspect]
     Active Substance: PREDNISONE
     Indication: Pyoderma gangrenosum
     Dosage: UNK
     Route: 065
  4. TACROLIMUS [Suspect]
     Active Substance: TACROLIMUS
     Indication: Pyoderma gangrenosum
     Dosage: UNK
     Route: 061

REACTIONS (1)
  - Treatment failure [Unknown]
